FAERS Safety Report 25503367 (Version 1)
Quarter: 2025Q3

REPORT INFORMATION
  Report Type: Spontaneous
  Country: EU (occurrence: EU)
  Receive Date: 20250702
  Receipt Date: 20250702
  Transmission Date: 20251020
  Serious: Yes (Death, Other)
  Sender: AMGEN
  Company Number: EU-AMGEN-ESPSP2025124110

PATIENT

DRUGS (2)
  1. CINACALCET HYDROCHLORIDE [Suspect]
     Active Substance: CINACALCET HYDROCHLORIDE
     Indication: Calciphylaxis
     Route: 065
  2. SODIUM THIOSULFATE [Concomitant]
     Active Substance: SODIUM THIOSULFATE
     Indication: Calciphylaxis
     Route: 040

REACTIONS (16)
  - Death [Fatal]
  - Disease progression [Fatal]
  - Sepsis [Fatal]
  - Endocarditis [Unknown]
  - Superinfection [Unknown]
  - Device related bacteraemia [Unknown]
  - Poor venous access [Unknown]
  - Off label use [Unknown]
  - Haemorrhage [Unknown]
  - Metabolic acidosis [Unknown]
  - Nausea [Unknown]
  - Vomiting [Unknown]
  - Hypernatraemia [Unknown]
  - Hypervolaemia [Unknown]
  - Hypotension [Unknown]
  - Supraventricular tachycardia [Unknown]
